FAERS Safety Report 16976452 (Version 6)
Quarter: 2020Q1

REPORT INFORMATION
  Report Type: Spontaneous
  Country: US (occurrence: US)
  Receive Date: 20191030
  Receipt Date: 20200314
  Transmission Date: 20200409
  Serious: No
  Sender: FDA-Public Use
  Company Number: US-ACTELION-A-NJ2019-197594

PATIENT
  Age: 62 Year
  Sex: Female
  Weight: 79.37 kg

DRUGS (9)
  1. OPSUMIT [Suspect]
     Active Substance: MACITENTAN
     Indication: PULMONARY ARTERIAL HYPERTENSION
     Dosage: 10 MG, QD
     Route: 048
  2. LASIX [Concomitant]
     Active Substance: FUROSEMIDE
     Dosage: 20 MG
  3. UPTRAVI [Suspect]
     Active Substance: SELEXIPAG
     Dosage: 600 MCG, BID
     Route: 048
     Dates: start: 20191105
  4. UPTRAVI [Suspect]
     Active Substance: SELEXIPAG
     Dosage: 3200 MCG, BID
     Route: 048
  5. UPTRAVI [Suspect]
     Active Substance: SELEXIPAG
     Indication: PULMONARY ARTERIAL HYPERTENSION
     Dosage: 200 MCG, BID
     Route: 048
     Dates: start: 20191008
  6. SILDENAFIL CITRATE. [Concomitant]
     Active Substance: SILDENAFIL CITRATE
  7. UPTRAVI [Suspect]
     Active Substance: SELEXIPAG
     Dosage: 400 MCG, BID
     Route: 048
     Dates: start: 20191022
  8. UPTRAVI [Suspect]
     Active Substance: SELEXIPAG
     Dosage: 1600 MCG, BID
     Route: 048
  9. AMLODIPINE [Concomitant]
     Active Substance: AMLODIPINE BESYLATE

REACTIONS (22)
  - Diarrhoea [Recovering/Resolving]
  - Fluid retention [Unknown]
  - Contusion [Recovered/Resolved]
  - Dry mouth [Unknown]
  - Limb discomfort [Unknown]
  - Rash [Unknown]
  - Rash macular [Unknown]
  - Musculoskeletal discomfort [Unknown]
  - Systemic scleroderma [Unknown]
  - Headache [Unknown]
  - Poor quality sleep [Unknown]
  - Scleroderma [Unknown]
  - Discomfort [Unknown]
  - Head discomfort [Unknown]
  - Pain [Unknown]
  - Accidental overdose [Unknown]
  - Pain in jaw [Recovered/Resolved]
  - Insomnia [Unknown]
  - Dry throat [Unknown]
  - Weight increased [Unknown]
  - Pain in extremity [Unknown]
  - Feeling abnormal [Unknown]

NARRATIVE: CASE EVENT DATE: 20191008
